FAERS Safety Report 23074792 (Version 3)
Quarter: 2024Q1

REPORT INFORMATION
  Report Type: Spontaneous
  Country: US (occurrence: US)
  Receive Date: 20231017
  Receipt Date: 20240214
  Transmission Date: 20240410
  Serious: Yes (Hospitalization, Other)
  Sender: FDA-Public Use
  Company Number: US-BRISTOL-MYERS SQUIBB COMPANY-2023-145657

PATIENT
  Age: 72 Year
  Sex: Male
  Weight: 113.4 kg

DRUGS (2)
  1. LENALIDOMIDE [Suspect]
     Active Substance: LENALIDOMIDE
     Indication: Plasma cell myeloma
     Dosage: FREQUENCY: DAILY 1-21, THE 7 DAYS OFF
     Route: 048
     Dates: start: 20221007
  2. LENALIDOMIDE [Suspect]
     Active Substance: LENALIDOMIDE
     Indication: Plasma cell myeloma

REACTIONS (5)
  - Dehydration [Not Recovered/Not Resolved]
  - Acute kidney injury [Recovering/Resolving]
  - Decreased appetite [Recovering/Resolving]
  - Blood glucose decreased [Recovering/Resolving]
  - Nasopharyngitis [Recovering/Resolving]

NARRATIVE: CASE EVENT DATE: 20231001
